FAERS Safety Report 7674522-4 (Version None)
Quarter: 2011Q3

REPORT INFORMATION
  Report Type: 
  Country: None (occurrence: None)
  Receive Date: 20110810
  Receipt Date: 20110727
  Transmission Date: 20111222
  Serious: Yes (Other)
  Sender: FDA-Public Use
  Company Number: PHHY2011BR67978

PATIENT
  Sex: Female
  Weight: 66 kg

DRUGS (1)
  1. EXFORGE HCT [Suspect]
     Indication: BLOOD PRESSURE
     Dosage: 1 DF, (160/12.5/5 MG) A DAY
     Route: 048

REACTIONS (1)
  - CATARACT [None]
